FAERS Safety Report 14745229 (Version 1)
Quarter: 2018Q2

REPORT INFORMATION
  Report Type: Spontaneous
  Country: FR (occurrence: FR)
  Receive Date: 20180411
  Receipt Date: 20180411
  Transmission Date: 20180711
  Serious: Yes (Other)
  Sender: FDA-Public Use
  Company Number: FR-MERCK KGAA-2045534

PATIENT
  Age: 44 Year
  Sex: Female

DRUGS (1)
  1. NOVOTHYROX [Suspect]
     Active Substance: LEVOTHYROXINE SODIUM
     Indication: PRODUCT USED FOR UNKNOWN INDICATION

REACTIONS (32)
  - Loss of personal independence in daily activities [None]
  - Abdominal distension [None]
  - Weight increased [None]
  - Emotional distress [None]
  - Anxiety [None]
  - Amnesia [None]
  - Affect lability [None]
  - Thyroxine free increased [None]
  - Premature ageing [None]
  - Aphasia [None]
  - Fatigue [None]
  - Impaired driving ability [None]
  - Social avoidant behaviour [None]
  - Middle insomnia [None]
  - Hypokinesia [None]
  - Incorrect dose administered [None]
  - Mobility decreased [None]
  - Chest discomfort [None]
  - Crying [None]
  - Arthralgia [None]
  - Sluggishness [None]
  - Insomnia [None]
  - Aggression [None]
  - Eye disorder [None]
  - Irritability [None]
  - Muscle spasms [None]
  - Dizziness [None]
  - Somnolence [None]
  - Fear [None]
  - Memory impairment [None]
  - Constipation [None]
  - Hypometabolism [None]

NARRATIVE: CASE EVENT DATE: 2017
